FAERS Safety Report 5315965-3 (Version None)
Quarter: 2007Q2

REPORT INFORMATION
  Report Type: 
  Country: None (occurrence: None)
  Receive Date: 20070503
  Receipt Date: 20070423
  Transmission Date: 20071010
  Serious: Yes (Other)
  Sender: FDA-Public Use
  Company Number: US-PFIZER INC-2007033436

PATIENT
  Sex: Female
  Weight: 55.454 kg

DRUGS (5)
  1. LYRICA [Suspect]
     Indication: ENDOMETRIOSIS
     Dates: start: 20060401, end: 20070201
  2. CYMBALTA [Concomitant]
  3. XANAX [Concomitant]
  4. ALL OTHER THERAPEUTIC PRODUCTS [Concomitant]
  5. VICODIN [Concomitant]

REACTIONS (6)
  - ABASIA [None]
  - ANAPHYLACTIC SHOCK [None]
  - CHEST PAIN [None]
  - HYPOAESTHESIA [None]
  - MUSCULAR WEAKNESS [None]
  - UNEVALUABLE EVENT [None]
